FAERS Safety Report 5622205-4 (Version None)
Quarter: 2008Q1

REPORT INFORMATION
  Report Type: 
  Country: None (occurrence: None)
  Receive Date: 20080211
  Receipt Date: 20080204
  Transmission Date: 20080703
  Serious: Yes (Other)
  Sender: FDA-Public Use
  Company Number: JP-ASTRAZENECA-2008AP00347

PATIENT
  Age: 62 Year
  Sex: Female
  Weight: 49.5 kg

DRUGS (9)
  1. MEROPENEM [Suspect]
     Indication: MENINGITIS BACTERIAL
     Route: 042
     Dates: start: 20070615, end: 20070625
  2. MEROPENEM [Suspect]
     Route: 042
     Dates: start: 20070626, end: 20070628
  3. CLARUTE [Concomitant]
     Indication: ATRIAL FIBRILLATION
     Route: 042
     Dates: start: 20070615, end: 20070626
  4. DECADRON [Concomitant]
     Indication: MENINGITIS BACTERIAL
     Route: 042
     Dates: start: 20070617, end: 20070617
  5. IMMUNE GLOBULIN INTRAVENOUS (HUMAN) [Concomitant]
     Indication: MENINGITIS BACTERIAL
     Route: 042
     Dates: start: 20070615, end: 20070616
  6. IMMUNE GLOBULIN INTRAVENOUS (HUMAN) [Concomitant]
     Route: 042
     Dates: start: 20070617, end: 20070617
  7. DORMICUM [Concomitant]
     Indication: MENINGITIS BACTERIAL
     Dosage: 3ML/HOUR
     Route: 042
     Dates: start: 20070615, end: 20070618
  8. HEPARIN [Concomitant]
     Indication: ATRIAL FIBRILLATION
     Dosage: 8 KIU/DAY
     Route: 042
     Dates: start: 20070616, end: 20070703
  9. NOVOLIN R [Concomitant]
     Indication: HYPERGLYCAEMIA
     Route: 058
     Dates: start: 20070616, end: 20070630

REACTIONS (1)
  - ENCEPHALOPATHY [None]
